FAERS Safety Report 9860963 (Version 1)
Quarter: 2014Q1

REPORT INFORMATION
  Report Type: Spontaneous
  Country: BR (occurrence: BR)
  Receive Date: 20140202
  Receipt Date: 20140202
  Transmission Date: 20141002
  Serious: No
  Sender: FDA-Public Use
  Company Number: BR-ALLERGAN-1302404US

PATIENT
  Age: 42 Year
  Sex: Female

DRUGS (3)
  1. BOTOX [Suspect]
     Indication: PRODUCT USED FOR UNKNOWN INDICATION
     Dosage: UNK
     Dates: start: 20130115, end: 20130115
  2. JUVEDERM ULTRA PLUS [Suspect]
     Dosage: 1 ML, UNK
     Dates: start: 20130115, end: 20130115
  3. HIALURONIDASE [Concomitant]
     Indication: PRODUCT USED FOR UNKNOWN INDICATION
     Dosage: 40 UNITS, UNK

REACTIONS (3)
  - Hyperaemia [Recovered/Resolved]
  - Oedema [Recovered/Resolved]
  - Necrosis [Recovered/Resolved]
